FAERS Safety Report 5005042-3 (Version None)
Quarter: 2006Q2

REPORT INFORMATION
  Report Type: 
  Country: None (occurrence: None)
  Receive Date: 20060516
  Receipt Date: 20060516
  Transmission Date: 20061013
  Serious: Yes (Other)
  Sender: FDA-Public Use
  Company Number: None

PATIENT
  Age: 22 Year
  Sex: Female
  Weight: 81.6475 kg

DRUGS (1)
  1. LUPRON DEPOT [Suspect]
     Indication: ENDOMETRIOSIS
     Dosage: 3.75MG  MONTHLY  OTHER
     Route: 050
     Dates: start: 20031101, end: 20040401

REACTIONS (7)
  - BLADDER PAIN [None]
  - BONE PAIN [None]
  - CONDITION AGGRAVATED [None]
  - ENDOMETRIOSIS [None]
  - MIGRAINE [None]
  - MYALGIA [None]
  - VISION BLURRED [None]
